FAERS Safety Report 6768723-7 (Version None)
Quarter: 2010Q2

REPORT INFORMATION
  Report Type: 
  Country: None (occurrence: None)
  Receive Date: 20100614
  Receipt Date: 20100604
  Transmission Date: 20101027
  Serious: Yes (Other)
  Sender: FDA-Public Use
  Company Number: US-AMGEN-KDL416511

PATIENT
  Age: 17 Year
  Sex: Female

DRUGS (9)
  1. EPOGEN [Suspect]
     Indication: RENAL FAILURE CHRONIC
  2. PREDNISONE [Concomitant]
  3. AZATHIOPRINE [Concomitant]
  4. CYCLOSPORINE [Concomitant]
  5. FUROSEMIDE [Concomitant]
  6. CALCITRIOL [Concomitant]
  7. FERROUS SULFATE TAB [Concomitant]
  8. PRENATAL VITAMINS [Concomitant]
  9. FLUOXETINE HCL [Concomitant]

REACTIONS (3)
  - HAEMATOCRIT DECREASED [None]
  - HYPERTENSION [None]
  - RENAL FAILURE [None]
